FAERS Safety Report 11862133 (Version 3)
Quarter: 2016Q2

REPORT INFORMATION
  Report Type: Spontaneous
  Country: US (occurrence: US)
  Receive Date: 20151222
  Receipt Date: 20160419
  Transmission Date: 20160815
  Serious: Yes (Other)
  Sender: FDA-Public Use
  Company Number: US-GILEAD-2015-0188923

PATIENT
  Age: 23 Year
  Sex: Female
  Weight: 71.2 kg

DRUGS (1)
  1. HARVONI [Suspect]
     Active Substance: LEDIPASVIR\SOFOSBUVIR
     Indication: HEPATITIS C
     Dosage: 1 DF, QD
     Route: 048
     Dates: start: 20151113, end: 20160107

REACTIONS (7)
  - Eye haemorrhage [Recovered/Resolved]
  - Rash pruritic [Recovered/Resolved]
  - Eye discharge [Unknown]
  - Dry eye [Unknown]
  - Rash erythematous [Recovered/Resolved]
  - Eye irritation [Unknown]
  - Fatigue [Not Recovered/Not Resolved]
